FAERS Safety Report 25300835 (Version 1)
Quarter: 2025Q2

REPORT INFORMATION
  Report Type: Spontaneous
  Country: NL (occurrence: NL)
  Receive Date: 20250512
  Receipt Date: 20250512
  Transmission Date: 20250717
  Serious: Yes (Other)
  Sender: ALEXION PHARMACEUTICALS
  Company Number: None

PATIENT
  Age: 83 Year
  Weight: 62 kg

DRUGS (17)
  1. DAPAGLIFLOZIN [Suspect]
     Active Substance: DAPAGLIFLOZIN
     Indication: Diabetes mellitus
  2. DAPAGLIFLOZIN [Suspect]
     Active Substance: DAPAGLIFLOZIN
     Indication: Peripheral arterial occlusive disease
  3. PERINDOPRIL [Suspect]
     Active Substance: PERINDOPRIL
     Indication: Acute coronary syndrome
  4. METOPROLOL [Concomitant]
     Active Substance: METOPROLOL
  5. PANTOPRAZOLE [Concomitant]
     Active Substance: PANTOPRAZOLE
  6. ISOSORBIDE MONONITRATE [Concomitant]
     Active Substance: ISOSORBIDE MONONITRATE
  7. TIMOLOL [Concomitant]
     Active Substance: TIMOLOL
  8. BIMATOPROST [Concomitant]
     Active Substance: BIMATOPROST
  9. INSULIN ASPART [Concomitant]
     Active Substance: INSULIN ASPART
  10. HYPROMELLOSES [Concomitant]
     Active Substance: HYPROMELLOSES
  11. CHOLECALCIFEROL [Concomitant]
     Active Substance: CHOLECALCIFEROL
  12. CLOPIDOGREL [Concomitant]
     Active Substance: CLOPIDOGREL BISULFATE
  13. INSULIN GLARGINE [Concomitant]
     Active Substance: INSULIN GLARGINE
  14. ROSUVASTATIN [Concomitant]
     Active Substance: ROSUVASTATIN
  15. EZETIMIBE [Concomitant]
     Active Substance: EZETIMIBE
  16. ASPIRIN [Concomitant]
     Active Substance: ASPIRIN
  17. FUROSEMIDE [Concomitant]
     Active Substance: FUROSEMIDE

REACTIONS (1)
  - Renal impairment [Unknown]
